FAERS Safety Report 20264942 (Version 1)
Quarter: 2021Q4

REPORT INFORMATION
  Report Type: Spontaneous
  Country: DE (occurrence: DE)
  Receive Date: 20211231
  Receipt Date: 20211231
  Transmission Date: 20220303
  Serious: Yes (Other)
  Sender: FDA-Public Use
  Company Number: None

PATIENT
  Age: 42 Year
  Sex: Female
  Weight: 58 kg

DRUGS (2)
  1. LIDOCAINE [Suspect]
     Active Substance: LIDOCAINE
     Indication: Local anaesthesia
     Dosage: 0.05 ML,TOTAL
     Route: 058
     Dates: start: 20210916
  2. LIDOCAINE [Suspect]
     Active Substance: LIDOCAINE
     Indication: Xanthelasma
     Dosage: 0.05 ML,TOTAL
     Route: 065
     Dates: start: 20211103

REACTIONS (5)
  - Erythema of eyelid [Recovered/Resolved]
  - Swelling of eyelid [Recovered/Resolved]
  - Face oedema [Recovered/Resolved]
  - Eyelid oedema [Recovered/Resolved]
  - Erysipelas [Recovered/Resolved]

NARRATIVE: CASE EVENT DATE: 20211101
